FAERS Safety Report 16841009 (Version 1)
Quarter: 2019Q3

REPORT INFORMATION
  Report Type: Spontaneous
  Country: GB (occurrence: GB)
  Receive Date: 20190923
  Receipt Date: 20190923
  Transmission Date: 20191005
  Serious: Yes (Disabling)
  Sender: FDA-Public Use
  Company Number: GB-US WORLDMEDS, LLC-E2B_00003071

PATIENT
  Age: 60 Year
  Sex: Female

DRUGS (14)
  1. CITALOPRAM [Concomitant]
     Active Substance: CITALOPRAM HYDROBROMIDE
     Dates: start: 20170621
  2. CIRCADIN [Concomitant]
     Active Substance: MELATONIN
     Dates: start: 20190429
  3. ACETYLSALICYLIC ACID [Concomitant]
     Active Substance: ASPIRIN
     Dates: start: 20170621
  4. METFORMIN [Concomitant]
     Active Substance: METFORMIN HYDROCHLORIDE
     Dates: start: 20170621
  5. SAFINAMIDE [Suspect]
     Active Substance: SAFINAMIDE
     Route: 048
     Dates: start: 20190304, end: 20190820
  6. RAMIPRIL. [Concomitant]
     Active Substance: RAMIPRIL
     Dates: start: 20171108
  7. HUMULIN M3 [Concomitant]
     Active Substance: INSULIN HUMAN
     Dosage: USE TWICE AS DAY
     Dates: start: 20170621
  8. CLOTRIMAZOLE. [Concomitant]
     Active Substance: CLOTRIMAZOLE
     Dates: start: 20190805, end: 20190819
  9. CO-BENELDOPA [Concomitant]
     Active Substance: BENSERAZIDE HYDROCHLORIDE\LEVODOPA
     Dates: start: 20170621
  10. MADOPAR [Concomitant]
     Active Substance: BENSERAZIDE HYDROCHLORIDE\LEVODOPA
     Dosage: AT NIGHT
     Dates: start: 20190306
  11. TRAMADOL. [Concomitant]
     Active Substance: TRAMADOL
     Dosage: ONE TO TWO CAPSULES TO BE TAKEN
     Dates: start: 20170621
  12. OMEPRAZOLE. [Concomitant]
     Active Substance: OMEPRAZOLE
     Dates: start: 20170621
  13. ATORVASTATIN [Concomitant]
     Active Substance: ATORVASTATIN
     Dates: start: 20170621
  14. DAPAGLIFLOZIN. [Concomitant]
     Active Substance: DAPAGLIFLOZIN
     Dates: start: 20170621

REACTIONS (2)
  - Bone pain [Recovered/Resolved]
  - Urinary incontinence [Recovered/Resolved]

NARRATIVE: CASE EVENT DATE: 20190401
